FAERS Safety Report 8382961-1 (Version None)
Quarter: 2012Q2

REPORT INFORMATION
  Report Type: 
  Country: None (occurrence: None)
  Receive Date: 20120524
  Receipt Date: 20120213
  Transmission Date: 20120825
  Serious: No
  Sender: FDA-Public Use
  Company Number: US-ALLERGAN-1116917US

PATIENT
  Sex: Female

DRUGS (3)
  1. LASTACAFT [Suspect]
     Indication: SEASONAL ALLERGY
     Dosage: 2 GTT, BID
     Route: 047
     Dates: start: 20111208, end: 20111222
  2. LASTACAFT [Suspect]
     Indication: EYE INJURY
     Dosage: 2 GTT, BID
     Route: 047
     Dates: start: 20111222
  3. ARTIFICIAL TEARS                   /00445101/ [Concomitant]
     Indication: PRODUCT USED FOR UNKNOWN INDICATION

REACTIONS (3)
  - SCLERAL HYPERAEMIA [None]
  - EYE PRURITUS [None]
  - ERYTHEMA OF EYELID [None]
